FAERS Safety Report 7349585-6 (Version None)
Quarter: 2011Q1

REPORT INFORMATION
  Report Type: 
  Country: None (occurrence: None)
  Receive Date: 20110309
  Receipt Date: 20110309
  Transmission Date: 20110831
  Serious: No
  Sender: FDA-Public Use
  Company Number: None

PATIENT
  Sex: Female
  Weight: 63.5 kg

DRUGS (1)
  1. CORGARD [Suspect]
     Indication: SUPRAVENTRICULAR TACHYCARDIA
     Dosage: 20MG DILY PO
     Route: 048
     Dates: start: 20050505, end: 20050525

REACTIONS (1)
  - SUPRAVENTRICULAR TACHYCARDIA [None]
